FAERS Safety Report 25025980 (Version 1)
Quarter: 2025Q1

REPORT INFORMATION
  Report Type: Report from Study
  Country: IT (occurrence: IT)
  Receive Date: 20250301
  Receipt Date: 20250301
  Transmission Date: 20250408
  Serious: No
  Sender: SANDOZ
  Company Number: IT-SANDOZ-SDZ2024IT074397

PATIENT
  Age: 8 Year
  Sex: Male
  Weight: 21 kg

DRUGS (1)
  1. OMNITROPE [Suspect]
     Active Substance: SOMATROPIN
     Indication: Growth hormone deficiency
     Dosage: 0.6 MG, QD
     Route: 058
     Dates: start: 20240205

REACTIONS (3)
  - Drug dose omission by device [Unknown]
  - Device occlusion [Unknown]
  - Device issue [Unknown]

NARRATIVE: CASE EVENT DATE: 20240817
